FAERS Safety Report 6469526-3 (Version None)
Quarter: 2009Q4

REPORT INFORMATION
  Report Type: 
  Country: None (occurrence: None)
  Receive Date: 20091203
  Receipt Date: 20091125
  Transmission Date: 20100525
  Serious: Yes (Death, Hospitalization)
  Sender: FDA-Public Use
  Company Number: GB-PFIZER INC-2009302481

PATIENT
  Age: 71 Year
  Sex: Female
  Weight: 58 kg

DRUGS (16)
  1. SUNITINIB MALATE [Suspect]
     Indication: RENAL CANCER
     Dosage: 50 MG, 1X/DAY
     Route: 048
     Dates: start: 20080222, end: 20080321
  2. AMOXICILLIN [Concomitant]
  3. BISACODYL [Concomitant]
  4. MICROLAX [Concomitant]
  5. ENOXAPARIN SODIUM [Concomitant]
  6. DEXAMETHASONE [Concomitant]
  7. DICLOFENAC [Concomitant]
  8. PAMIDRONATE DISODIUM [Concomitant]
  9. DOCUSATE SODIUM [Concomitant]
  10. GLYCERIN [Concomitant]
  11. MORPHINE SULFATE [Concomitant]
  12. NULYTELY [Concomitant]
  13. OMEPRAZOLE [Concomitant]
  14. PARACETAMOL [Concomitant]
  15. SENNA [Concomitant]
  16. SIMVASTATIN [Concomitant]

REACTIONS (2)
  - GASTROINTESTINAL HAEMORRHAGE [None]
  - THROMBOCYTOPENIA [None]
